FAERS Safety Report 4358809-9 (Version None)
Quarter: 2004Q2

REPORT INFORMATION
  Report Type: 
  Country: None (occurrence: None)
  Receive Date: 20040511
  Receipt Date: 20040422
  Transmission Date: 20050107
  Serious: Yes (Other)
  Sender: FDA-Public Use
  Company Number: 8006140

PATIENT
  Age: 58 Year
  Sex: Female

DRUGS (9)
  1. KEPPRA [Suspect]
     Indication: EPILEPSY
     Dosage: 3000 MG PO
     Route: 048
     Dates: start: 20030901
  2. CALCIUM [Concomitant]
  3. VITAMIN D [Concomitant]
  4. FOLATE [Concomitant]
  5. FOSAMAX [Concomitant]
  6. PROZAC [Concomitant]
  7. ZYRTEC [Concomitant]
  8. ACIPHEX [Concomitant]
  9. TRIAMTERINE - HYDROCHLOROTHIAZIDE [Concomitant]

REACTIONS (2)
  - ANAEMIA [None]
  - THROMBOCYTOPENIA [None]
